FAERS Safety Report 23974718 (Version 1)
Quarter: 2024Q2

REPORT INFORMATION
  Report Type: Spontaneous
  Country: FR (occurrence: FR)
  Receive Date: 20240614
  Receipt Date: 20240614
  Transmission Date: 20240716
  Serious: Yes (Hospitalization)
  Sender: FDA-Public Use
  Company Number: None

PATIENT
  Age: 36 Year
  Sex: Male
  Weight: 80 kg

DRUGS (3)
  1. OLANZAPINE PAMOATE [Suspect]
     Active Substance: OLANZAPINE PAMOATE
     Indication: Schizophrenia
     Dosage: INJECTION WAS CARRIED OUT AT 3PM AND THE PATIENT LEFT AT 3:30PM/ ZYPADHERA WAS DISCONTINUED AND R...
     Route: 030
     Dates: start: 20240516, end: 20240516
  2. OLANZAPINE PAMOATE [Suspect]
     Active Substance: OLANZAPINE PAMOATE
     Indication: Schizophrenia
     Dosage: THE PATIENT HAS BEEN TREATED WITH ZYPADHERA 405 MG/28D SINCE AT LEAST JULY 2022.
  3. CHOLECALCIFEROL [Concomitant]
     Active Substance: CHOLECALCIFEROL

REACTIONS (3)
  - Post-injection delirium sedation syndrome [Recovered/Resolved]
  - Metabolic acidosis [Unknown]
  - Hyperlactacidaemia [Unknown]

NARRATIVE: CASE EVENT DATE: 20240516
